FAERS Safety Report 22359329 (Version 2)
Quarter: 2025Q2

REPORT INFORMATION
  Report Type: Spontaneous
  Country: IT (occurrence: IT)
  Receive Date: 20230524
  Receipt Date: 20250604
  Transmission Date: 20250717
  Serious: Yes (Other)
  Sender: AUROBINDO
  Company Number: IT-AUROBINDO-AUR-APL-2023-038161

PATIENT
  Age: 57 Year
  Sex: Female

DRUGS (11)
  1. OXALIPLATIN [Suspect]
     Active Substance: OXALIPLATIN
     Indication: Rectal adenocarcinoma
     Route: 065
  2. CAPECITABINE [Suspect]
     Active Substance: CAPECITABINE
     Indication: Rectal adenocarcinoma
     Route: 065
  3. LEUCOVORIN [Suspect]
     Active Substance: LEUCOVORIN\LEUCOVORIN CALCIUM
     Indication: Rectal adenocarcinoma
     Route: 065
  4. FLUOROURACIL [Suspect]
     Active Substance: FLUOROURACIL
     Indication: Rectal adenocarcinoma
     Route: 065
  5. REGORAFENIB [Concomitant]
     Active Substance: REGORAFENIB
     Indication: Rectal adenocarcinoma
     Route: 048
  6. REGORAFENIB [Concomitant]
     Active Substance: REGORAFENIB
     Route: 065
     Dates: start: 201401
  7. IRINOTECAN [Concomitant]
     Active Substance: IRINOTECAN
     Indication: Rectal adenocarcinoma
     Route: 065
     Dates: start: 200803, end: 200808
  8. BEVACIZUMAB [Concomitant]
     Active Substance: BEVACIZUMAB
     Indication: Rectal adenocarcinoma
     Route: 065
     Dates: start: 200803, end: 200808
  9. BEVACIZUMAB [Concomitant]
     Active Substance: BEVACIZUMAB
     Route: 065
     Dates: start: 200908
  10. CETUXIMAB [Concomitant]
     Active Substance: CETUXIMAB
     Indication: Rectal adenocarcinoma
     Route: 065
  11. CETUXIMAB [Concomitant]
     Active Substance: CETUXIMAB
     Route: 065
     Dates: end: 201208

REACTIONS (1)
  - Drug ineffective [Unknown]
